FAERS Safety Report 5393315-4 (Version None)
Quarter: 2007Q3

REPORT INFORMATION
  Report Type: 
  Country: None (occurrence: None)
  Receive Date: 20070723
  Receipt Date: 20070709
  Transmission Date: 20080115
  Serious: Yes (Other)
  Sender: FDA-Public Use
  Company Number: PHEH2007US08856

PATIENT
  Sex: Male

DRUGS (1)
  1. ZELNORM [Suspect]
     Route: 048

REACTIONS (6)
  - ANORECTAL DISORDER [None]
  - DISCOMFORT [None]
  - GASTROINTESTINAL HAEMORRHAGE [None]
  - PRURITUS [None]
  - STOMACH DISCOMFORT [None]
  - URTICARIA [None]
